FAERS Safety Report 4336333-7 (Version None)
Quarter: 2004Q2

REPORT INFORMATION
  Report Type: 
  Country: None (occurrence: None)
  Receive Date: 20040407
  Receipt Date: 20040324
  Transmission Date: 20050107
  Serious: Yes (Other)
  Sender: FDA-Public Use
  Company Number: 2004-114183-NL

PATIENT
  Age: 29 Year
  Sex: Female
  Weight: 63.6 kg

DRUGS (1)
  1. MIRCETTE [Suspect]
     Indication: CONTRACEPTION
     Dosage: 1 DF DAILY

REACTIONS (1)
  - BREAST CANCER STAGE I [None]
